FAERS Safety Report 23944658 (Version 2)
Quarter: 2024Q2

REPORT INFORMATION
  Report Type: Report from Study
  Country: US (occurrence: US)
  Receive Date: 20240606
  Receipt Date: 20240624
  Transmission Date: 20240716
  Serious: Yes (Other)
  Sender: FDA-Public Use
  Company Number: US-002147023-NVSC2024US116982

PATIENT
  Age: 29 Year
  Sex: Female

DRUGS (20)
  1. KISQALI [Suspect]
     Active Substance: RIBOCICLIB
     Indication: Ovarian cancer metastatic
     Dosage: 3 DOSAGE FORM, QD (FOR 3 WEEKS, FOLLOWED BY 1 WEEK REST)
     Route: 048
     Dates: start: 20240418
  2. FEMARA [Suspect]
     Active Substance: LETROZOLE
     Indication: Product used for unknown indication
     Dosage: 1 DOSAGE FORM, QD
     Route: 048
     Dates: start: 20240418
  3. GLUCAGON [Concomitant]
     Active Substance: GLUCAGON\GLUCAGON HYDROCHLORIDE\WATER
     Indication: Product used for unknown indication
     Dosage: 1 MG
     Route: 030
  4. GADAVIST [Concomitant]
     Active Substance: GADOBUTROL
     Indication: Product used for unknown indication
     Dosage: UNK
     Route: 042
  5. AMPHOTERICIN B [Concomitant]
     Active Substance: AMPHOTERICIN B
     Indication: Product used for unknown indication
     Dosage: UNK
     Route: 065
  6. TYLENOL [Concomitant]
     Active Substance: ACETAMINOPHEN
     Indication: Product used for unknown indication
     Dosage: 1 DOSAGE FORM, PRN (EVERY 4 TO 6 HOURS AS NEEDED)
     Route: 065
  7. TEMOVATE [Concomitant]
     Active Substance: CLOBETASOL PROPIONATE
     Indication: Product used for unknown indication
     Dosage: 30 G, 4X/WEEK (APPLY THINLY TO AA)
     Route: 065
  8. VITAMIN B12 [Concomitant]
     Active Substance: CYANOCOBALAMIN
     Indication: Product used for unknown indication
     Dosage: UNK
     Route: 048
  9. UNSPECIFIED INGREDIENT [Concomitant]
     Active Substance: UNSPECIFIED INGREDIENT
     Indication: Product used for unknown indication
     Dosage: UNK
     Route: 048
  10. ATIVAN [Concomitant]
     Active Substance: LORAZEPAM
     Indication: Product used for unknown indication
     Dosage: 1-2 DOSAGE FORM, PRN (EVERY 6 TO 8 HOURS)
     Route: 048
  11. VITAMIN A [Concomitant]
     Active Substance: VITAMIN A
     Indication: Product used for unknown indication
     Dosage: UNK, QW3
     Route: 065
  12. DITROPAN [Concomitant]
     Active Substance: OXYBUTYNIN CHLORIDE
     Indication: Product used for unknown indication
     Dosage: 1 DOSAGE FORM, QD
     Route: 048
  13. GOLYTELY [Concomitant]
     Active Substance: POLYETHYLENE GLYCOL 3350\POTASSIUM CHLORIDE\SODIUM BICARBONATE\SODIUM CHLORIDE\SODIUM SULFATE
     Indication: Product used for unknown indication
     Dosage: 2 L, BID (236-22.74-6.74 GRAM, BY MOUTH NIGHT BEFORE AND 2L MORNING OF PROCEDURE)
     Route: 048
  14. PYRIDIUM [Concomitant]
     Active Substance: PHENAZOPYRIDINE
     Indication: Product used for unknown indication
     Dosage: 1 DOSAGE FORM, TID
     Route: 048
  15. LYRICA [Concomitant]
     Active Substance: PREGABALIN
     Indication: Ovarian epithelial cancer
     Dosage: 1 DOSAGE FORM, QD (MAY ALSO TAKE 1 DF AS NEEDED)
     Route: 048
  16. LYRICA [Concomitant]
     Active Substance: PREGABALIN
     Indication: Cancer pain
  17. FLOMAX [Concomitant]
     Active Substance: TAMSULOSIN HYDROCHLORIDE
     Indication: Product used for unknown indication
     Dosage: 1 DOSAGE FORM, QD
     Route: 048
  18. LIDODERM [Concomitant]
     Active Substance: LIDOCAINE
     Indication: Product used for unknown indication
     Dosage: 1 DOSAGE FORM, QD (FOR 12 HOURS ON AND THEN 12 HOURS OFF)
     Route: 065
  19. MOVANTIK [Concomitant]
     Active Substance: NALOXEGOL OXALATE
     Indication: Product used for unknown indication
     Dosage: 1 DOSAGE FORM, QD
     Route: 048
  20. PNV DHA [Concomitant]
     Indication: Product used for unknown indication
     Dosage: 29 MG IRON-1 MG -350 MG CKDR
     Route: 048

REACTIONS (24)
  - Chronic kidney disease [Unknown]
  - Vomiting [Unknown]
  - Pyrexia [Unknown]
  - Nausea [Unknown]
  - Micturition urgency [Unknown]
  - Urinary incontinence [Unknown]
  - Urine output increased [Unknown]
  - Infection [Unknown]
  - Dysuria [Unknown]
  - Muscle spasms [Unknown]
  - Flank pain [Unknown]
  - Ureteric obstruction [Unknown]
  - Lymphadenopathy [Unknown]
  - Malaise [Unknown]
  - Dizziness [Unknown]
  - Haemoglobin abnormal [Unknown]
  - Fatigue [Unknown]
  - Night sweats [Unknown]
  - Back pain [Unknown]
  - Peripheral swelling [Recovering/Resolving]
  - Anaemia [Unknown]
  - Constipation [Unknown]
  - Vitamin B6 increased [Unknown]
  - Dyspnoea exertional [Unknown]

NARRATIVE: CASE EVENT DATE: 20240601
